FAERS Safety Report 12682832 (Version 1)
Quarter: 2016Q3

REPORT INFORMATION
  Report Type: Spontaneous
  Country: US (occurrence: None)
  Receive Date: 20160824
  Receipt Date: 20160824
  Transmission Date: 20161109
  Serious: No
  Sender: FDA-Public Use
  Company Number: None

PATIENT
  Age: 66 Year
  Sex: Female
  Weight: 58.97 kg

DRUGS (12)
  1. PSYLLIUM HUSKS [Concomitant]
  2. MULTI-VITAMIN [Concomitant]
     Active Substance: .ALPHA.-TOCOPHEROL ACETATE, DL-\ASCORBIC ACID\CYANOCOBALAMIN\FLUORIDE ION\FOLIC ACID\NIACIN\PYRIDOXINE\RIBOFLAVIN\THIAMINE\VITAMIN A\VITAMIN D
  3. RANITIDINE. [Concomitant]
     Active Substance: RANITIDINE
  4. UBIQUINOL COQ10 [Concomitant]
  5. ZETIA [Concomitant]
     Active Substance: EZETIMIBE
  6. OMEGA 3 FISH OIL + D [Concomitant]
  7. VITAMIN B6 [Concomitant]
     Active Substance: PYRIDOXINE HYDROCHLORIDE
  8. ATORVASTATIN [Concomitant]
     Active Substance: ATORVASTATIN
  9. ASPIRIN. [Concomitant]
     Active Substance: ASPIRIN
  10. GLUCOSAMINE/CHONDROITIN /08437701/ [Concomitant]
     Active Substance: CHONDROITIN SULFATE (BOVINE)\GLUCOSAMINE SULFATE
  11. AMLODIPINE [Suspect]
     Active Substance: AMLODIPINE BESYLATE
     Indication: PRINZMETAL ANGINA
     Dosage: 5 MG 90 TABS 1@DINNER BY MOUTH
     Route: 048
     Dates: start: 201606, end: 201606
  12. CALCIUM/MAGNESIUM [Concomitant]

REACTIONS (5)
  - Blood pressure decreased [None]
  - Dizziness [None]
  - Product substitution issue [None]
  - Fatigue [None]
  - Joint swelling [None]

NARRATIVE: CASE EVENT DATE: 201606
